FAERS Safety Report 10169702 (Version 6)
Quarter: 2014Q4

REPORT INFORMATION
  Report Type: Spontaneous
  Country: BR (occurrence: BR)
  Receive Date: 20140513
  Receipt Date: 20141222
  Transmission Date: 20150528
  Serious: Yes (Other)
  Sender: FDA-Public Use
  Company Number: BR-PFIZER INC-2014060060

PATIENT
  Age: 64 Year
  Sex: Male

DRUGS (1)
  1. SUTENT [Suspect]
     Active Substance: SUNITINIB MALATE
     Indication: RENAL CELL CARCINOMA
     Dosage: 50 MG, CYCLIC: DAILY, 4 WEEKS ON/2 WEEKS OFF
     Route: 048
     Dates: start: 20140217

REACTIONS (31)
  - Abasia [Unknown]
  - Dyspepsia [Unknown]
  - Musculoskeletal pain [Recovering/Resolving]
  - Abdominal pain upper [Unknown]
  - Throat tightness [Not Recovered/Not Resolved]
  - Constipation [Not Recovered/Not Resolved]
  - Oropharyngeal pain [Unknown]
  - Swelling face [Not Recovered/Not Resolved]
  - Fluid intake reduced [Unknown]
  - Palmar-plantar erythrodysaesthesia syndrome [Unknown]
  - Blood pressure fluctuation [Not Recovered/Not Resolved]
  - Diarrhoea haemorrhagic [Not Recovered/Not Resolved]
  - Skin depigmentation [Unknown]
  - Gastrooesophageal reflux disease [Unknown]
  - Weight decreased [Unknown]
  - Chills [Unknown]
  - Diarrhoea [Unknown]
  - Skin sensitisation [Unknown]
  - Headache [Not Recovered/Not Resolved]
  - Peripheral swelling [Not Recovered/Not Resolved]
  - Hypersomnia [Unknown]
  - Yellow skin [Unknown]
  - Hyperkeratosis [Not Recovered/Not Resolved]
  - Eating disorder [Unknown]
  - Pain in extremity [Unknown]
  - Oral pain [Unknown]
  - Hypertension [Recovering/Resolving]
  - Eye irritation [Not Recovered/Not Resolved]
  - Hypophagia [Unknown]
  - Musculoskeletal discomfort [Not Recovered/Not Resolved]
  - Swelling [Recovering/Resolving]

NARRATIVE: CASE EVENT DATE: 2014
